FAERS Safety Report 9189186 (Version 1)
Quarter: 2013Q1

REPORT INFORMATION
  Report Type: Spontaneous
  Country: GB (occurrence: GB)
  Receive Date: 20130326
  Receipt Date: 20130326
  Transmission Date: 20140127
  Serious: Yes (Other)
  Sender: FDA-Public Use
  Company Number: GB-RANBAXY-2013RR-65717

PATIENT
  Age: 43 Year
  Sex: Female

DRUGS (4)
  1. GABAPENTIN [Suspect]
     Indication: PARASOMNIA
     Dosage: UNK
     Route: 065
  2. CLONAZEPAM [Suspect]
     Indication: PARASOMNIA
     Dosage: 0.5-1 MG
     Route: 065
  3. PAROXETINE [Suspect]
     Indication: PARASOMNIA
     Dosage: UNK
     Route: 065
  4. TRAZODONE [Suspect]
     Indication: PARASOMNIA
     Dosage: UNK
     Route: 065

REACTIONS (4)
  - Depression [Unknown]
  - Weight increased [Unknown]
  - Sedation [Unknown]
  - Condition aggravated [Unknown]
